FAERS Safety Report 25252169 (Version 2)
Quarter: 2025Q2

REPORT INFORMATION
  Report Type: Report from Study
  Country: ES (occurrence: ES)
  Receive Date: 20250429
  Receipt Date: 20250430
  Transmission Date: 20250717
  Serious: Yes (Other)
  Sender: VERITY PHARMACEUTICALS INC.
  Company Number: ES-VER-202500004

PATIENT
  Sex: Female

DRUGS (9)
  1. TRIPTORELIN [Suspect]
     Active Substance: TRIPTORELIN
     Indication: Hypopituitarism
     Route: 058
  2. TRIPTORELIN [Suspect]
     Active Substance: TRIPTORELIN
     Indication: In vitro fertilisation
     Route: 058
  3. TRIPTORELIN [Suspect]
     Active Substance: TRIPTORELIN
     Indication: Controlled ovarian stimulation
     Route: 058
  4. MEDROXYPROGESTERONE [Suspect]
     Active Substance: MEDROXYPROGESTERONE
     Indication: Hypopituitarism
     Route: 065
  5. GANIRELIX [Suspect]
     Active Substance: GANIRELIX
     Indication: Hypopituitarism
     Route: 065
  6. CETRORELIX [Suspect]
     Active Substance: CETRORELIX
     Indication: Hypopituitarism
     Route: 065
  7. NAFARELIN [Suspect]
     Active Substance: NAFARELIN
     Indication: Hypopituitarism
     Route: 065
  8. LEUPROLIDE ACETATE [Suspect]
     Active Substance: LEUPROLIDE ACETATE
     Indication: Hypopituitarism
     Route: 065
  9. PROGESTERONE [Suspect]
     Active Substance: PROGESTERONE
     Indication: Hypopituitarism
     Route: 065

REACTIONS (4)
  - Abdominal pain [Recovered/Resolved]
  - Ectopic pregnancy [Recovered/Resolved]
  - Ovarian hyperstimulation syndrome [Recovered/Resolved]
  - Presyncope [Recovered/Resolved]
